FAERS Safety Report 17678542 (Version 1)
Quarter: 2020Q2

REPORT INFORMATION
  Report Type: Spontaneous
  Country: US (occurrence: US)
  Receive Date: 20200417
  Receipt Date: 20200417
  Transmission Date: 20200714
  Serious: No
  Sender: FDA-Public Use
  Company Number: US-ASTRAZENECA-2020SE51594

PATIENT
  Sex: Male

DRUGS (1)
  1. BYDUREON BCISE [Suspect]
     Active Substance: EXENATIDE
     Indication: DIABETES MELLITUS
     Dosage: ONCE A WEEK A WEEK
     Route: 065

REACTIONS (4)
  - Injection site pain [Unknown]
  - Device issue [Unknown]
  - Injection site nodule [Unknown]
  - Incorrect dose administered by device [Unknown]
